FAERS Safety Report 19012095 (Version 1)
Quarter: 2021Q1

REPORT INFORMATION
  Report Type: Spontaneous
  Country: US (occurrence: US)
  Receive Date: 20210315
  Receipt Date: 20210315
  Transmission Date: 20210420
  Serious: No
  Sender: FDA-Public Use
  Company Number: US-TAKEDA-2021TUS015067

PATIENT
  Sex: Female
  Weight: 70 kg

DRUGS (2)
  1. ENTYVIO [Suspect]
     Active Substance: VEDOLIZUMAB
     Indication: COLITIS ULCERATIVE
     Dosage: UNK UNK, Q8WEEKS
     Route: 065
     Dates: start: 2020
  2. LIALDA [Suspect]
     Active Substance: MESALAMINE
     Indication: COLITIS ULCERATIVE
     Dosage: 1.2 GRAM, BID
     Route: 065

REACTIONS (6)
  - Paraesthesia [Unknown]
  - Abdominal pain upper [Unknown]
  - Peripheral swelling [Unknown]
  - Myalgia [Unknown]
  - Diarrhoea [Unknown]
  - Nausea [Unknown]
